FAERS Safety Report 12167281 (Version 2)
Quarter: 2016Q1

REPORT INFORMATION
  Report Type: Report from Study
  Country: US (occurrence: US)
  Receive Date: 20160310
  Receipt Date: 20160325
  Transmission Date: 20160526
  Serious: Yes (Other)
  Sender: FDA-Public Use
  Company Number: US-ROCHE-1723789

PATIENT
  Age: 88 Year
  Sex: Male
  Weight: 83.54 kg

DRUGS (9)
  1. ASPIRIN. [Concomitant]
     Active Substance: ASPIRIN
     Dosage: BEEN TAKING FOR SEVERAL YEARS
     Route: 048
  2. CALCIUM PLUS (UNITED STATES) [Concomitant]
     Dosage: BEEN TAKING FOR SEVERAL YEARS
     Route: 048
  3. ESBRIET [Suspect]
     Active Substance: PIRFENIDONE
     Indication: IDIOPATHIC PULMONARY FIBROSIS
     Route: 048
     Dates: start: 20160212, end: 201603
  4. AMLODIPINE [Concomitant]
     Active Substance: AMLODIPINE BESYLATE
     Dosage: BEEN TAKING FOR SEVERAL YEARS
     Route: 048
  5. NIACIN. [Concomitant]
     Active Substance: NIACIN
     Dosage: BEEN TAKING FOR SEVERAL YEARS
     Route: 048
  6. ATORVASTATIN [Concomitant]
     Active Substance: ATORVASTATIN
     Dosage: BEEN TAKING FOR SEVERAL YEARS
     Route: 048
  7. ESBRIET [Suspect]
     Active Substance: PIRFENIDONE
     Route: 048
     Dates: start: 201603
  8. ESBRIET [Suspect]
     Active Substance: PIRFENIDONE
     Route: 048
     Dates: start: 20160202, end: 20160318
  9. ALPRAZOLAM. [Concomitant]
     Active Substance: ALPRAZOLAM
     Dosage: BEEN TAKING FOR SEVERAL YEARS
     Route: 048

REACTIONS (5)
  - Tremor [Not Recovered/Not Resolved]
  - Feeding disorder [Not Recovered/Not Resolved]
  - Feeling abnormal [Not Recovered/Not Resolved]
  - Weight decreased [Recovered/Resolved]
  - Memory impairment [Not Recovered/Not Resolved]

NARRATIVE: CASE EVENT DATE: 20160202
